FAERS Safety Report 10195906 (Version 1)
Quarter: 2014Q2

REPORT INFORMATION
  Report Type: Spontaneous
  Country: CN (occurrence: None)
  Receive Date: 20140522
  Receipt Date: 20140522
  Transmission Date: 20141212
  Serious: Yes (Hospitalization, Other)
  Sender: FDA-Public Use
  Company Number: VAL_03135_2014

PATIENT
  Age: 74 Year
  Sex: Female
  Weight: 71 kg

DRUGS (1)
  1. LOTENSIN [Suspect]
     Indication: HYPERTENSION
     Route: 048
     Dates: start: 20131114, end: 20131114

REACTIONS (4)
  - Anaphylactic reaction [None]
  - Palpitations [None]
  - Dizziness [None]
  - Heart rate increased [None]
